FAERS Safety Report 12375644 (Version 2)
Quarter: 2016Q2

REPORT INFORMATION
  Report Type: Spontaneous
  Country: US (occurrence: US)
  Receive Date: 20160517
  Receipt Date: 20160609
  Transmission Date: 20160815
  Serious: Yes (Hospitalization)
  Sender: FDA-Public Use
  Company Number: US-TAKEDA-2016MPI004044

PATIENT
  Age: 75 Year
  Sex: Male
  Weight: 82.6 kg

DRUGS (1)
  1. VELCADE [Suspect]
     Active Substance: BORTEZOMIB
     Indication: PLASMA CELL MYELOMA
     Dosage: 2.4 MG, 2/WEEK
     Route: 058
     Dates: start: 20160503

REACTIONS (6)
  - White blood cell count increased [Unknown]
  - Anaemia [Unknown]
  - Drug dose omission [Unknown]
  - Arrhythmia [Unknown]
  - Renal impairment [Unknown]
  - Infection [Unknown]
